FAERS Safety Report 16535542 (Version 1)
Quarter: 2019Q3

REPORT INFORMATION
  Report Type: Spontaneous
  Country: US (occurrence: US)
  Receive Date: 20190705
  Receipt Date: 20190705
  Transmission Date: 20191004
  Serious: No
  Sender: FDA-Public Use
  Company Number: US-PFIZER INC-2019283904

PATIENT
  Age: 65 Year
  Sex: Female
  Weight: 86 kg

DRUGS (4)
  1. LYRICA [Suspect]
     Active Substance: PREGABALIN
     Indication: HYPOAESTHESIA
     Dosage: 100 MG, 3X/DAY (100MG CAPSULE EVERY EIGHT HOURS)
     Dates: start: 201812
  2. LYRICA [Suspect]
     Active Substance: PREGABALIN
     Indication: NEUROPATHY PERIPHERAL
     Dosage: 50 MG, 1X/DAY (ONE 50MG A DAY FOR FIVE DAYS)
  3. LYRICA [Suspect]
     Active Substance: PREGABALIN
     Dosage: 50 MG, 2X/DAY (ONE 50MG TWICE A DAY FOR 5 DAYS)
  4. LYRICA [Suspect]
     Active Substance: PREGABALIN
     Indication: PARAESTHESIA
     Dosage: 100 MG, 2X/DAY (TWO TWICE A DAY)

REACTIONS (4)
  - Somnolence [Recovering/Resolving]
  - Vision blurred [Recovering/Resolving]
  - Sleep disorder [Recovering/Resolving]
  - Aphasia [Recovering/Resolving]
